FAERS Safety Report 9046928 (Version 1)
Quarter: 2013Q1

REPORT INFORMATION
  Report Type: Spontaneous
  Country: US (occurrence: None)
  Receive Date: 20130129
  Receipt Date: 20130129
  Transmission Date: 20140127
  Serious: Yes (Other)
  Sender: FDA-Public Use
  Company Number: None

PATIENT
  Age: 48 Year
  Sex: Female
  Weight: 58.06 kg

DRUGS (8)
  1. LACTAID [Suspect]
     Indication: LACTOSE INTOLERANCE
     Dosage: 1 TABLET AT EACH MEAL
     Route: 048
     Dates: start: 20121231, end: 20130125
  2. LACTAID [Suspect]
     Indication: IRRITABLE BOWEL SYNDROME
     Dosage: 1 TABLET AT EACH MEAL
     Route: 048
     Dates: start: 20121231, end: 20130125
  3. PREVACID [Concomitant]
  4. TUMS [Concomitant]
  5. DICYCLOMINE [Concomitant]
  6. DIPHEN/ATROP 2.5 MG [Concomitant]
  7. METRONIDAZOL [Concomitant]
  8. LACTAID [Concomitant]

REACTIONS (4)
  - Abdominal pain upper [None]
  - Vomiting [None]
  - Diarrhoea [None]
  - Economic problem [None]
